FAERS Safety Report 7793815-3 (Version None)
Quarter: 2011Q4

REPORT INFORMATION
  Report Type: 
  Country: None (occurrence: None)
  Receive Date: 20111003
  Receipt Date: 20110929
  Transmission Date: 20120403
  Serious: Yes (Hospitalization)
  Sender: FDA-Public Use
  Company Number: PHHY2011FR86610

PATIENT
  Age: 78 Year
  Sex: Female

DRUGS (3)
  1. ANTIHYPERTENSIVE DRUGS [Concomitant]
  2. ACETAMINOPHEN AND TRAMADOL HCL [Concomitant]
  3. VOLTAREN [Suspect]
     Indication: ARTHRALGIA
     Dosage: 75 MG, QD
     Route: 048

REACTIONS (2)
  - INFECTIOUS PERITONITIS [None]
  - LARGE INTESTINE PERFORATION [None]
